FAERS Safety Report 7231031-4 (Version None)
Quarter: 2011Q1

REPORT INFORMATION
  Report Type: 
  Country: None (occurrence: None)
  Receive Date: 20110118
  Receipt Date: 20110105
  Transmission Date: 20110831
  Serious: Yes (Other)
  Sender: FDA-Public Use
  Company Number: US-ELI_LILLY_AND_COMPANY-US201101001479

PATIENT
  Sex: Female

DRUGS (2)
  1. CYMBALTA [Suspect]
     Dosage: 120 MG, UNKNOWN
  2. CYMBALTA [Suspect]
     Indication: FIBROMYALGIA
     Dosage: 180 MG, UNKNOWN

REACTIONS (7)
  - PALLOR [None]
  - HYPERHIDROSIS [None]
  - OVERDOSE [None]
  - DRUG WITHDRAWAL SYNDROME [None]
  - NAUSEA [None]
  - SEROTONIN SYNDROME [None]
  - INFLUENZA LIKE ILLNESS [None]
